FAERS Safety Report 23700572 (Version 14)
Quarter: 2025Q2

REPORT INFORMATION
  Report Type: Spontaneous
  Country: JP (occurrence: JP)
  Receive Date: 20240403
  Receipt Date: 20250617
  Transmission Date: 20250716
  Serious: Yes (Life-Threatening, Hospitalization, Other)
  Sender: GLAXOSMITHKLINE
  Company Number: JP-GSKJP-JP2024JPN040691AA

PATIENT
  Age: 65 Year
  Sex: Male
  Weight: 47.3 kg

DRUGS (63)
  1. DAPRODUSTAT [Suspect]
     Active Substance: DAPRODUSTAT
     Indication: Nephrogenic anaemia
     Dosage: 4 MG, 1D (AFTER DINNER)
  2. DAPRODUSTAT [Suspect]
     Active Substance: DAPRODUSTAT
     Dosage: 8 MG, 1D
  3. DAPRODUSTAT [Suspect]
     Active Substance: DAPRODUSTAT
     Dosage: 16 MG, 1D
  4. DAPRODUSTAT [Suspect]
     Active Substance: DAPRODUSTAT
     Dosage: 24 MG, 1D
  5. DARBEPOETIN ALFA [Suspect]
     Active Substance: DARBEPOETIN ALFA
     Indication: Nephrogenic anaemia
  6. DARBEPOETIN ALFA [Suspect]
     Active Substance: DARBEPOETIN ALFA
  7. DARBEPOETIN ALFA [Suspect]
     Active Substance: DARBEPOETIN ALFA
     Dosage: 90 UG, WE
  8. BISOPROLOL FUMARATE [Concomitant]
     Active Substance: BISOPROLOL FUMARATE
     Dosage: 0.625 MG, 1D (AFTER LUNCH)
  9. P tol [Concomitant]
     Dosage: 250 MG, TID (IMMEDIATELY BEFORE EVERY MEAL)
  10. P tol [Concomitant]
     Dosage: 500 MG, TID
  11. P tol [Concomitant]
     Dosage: 500 MG, TID (RIGHT BEFORE BREAKFAST, LUNCH AND DINNER)
  12. DIETARY SUPPLEMENT\PROBIOTICS [Concomitant]
     Active Substance: DIETARY SUPPLEMENT\PROBIOTICS NOS
     Dosage: 1 DF, TID (AFTER BREAKFAST, LUNCH AND DINNER)
  13. POLAPREZINC [Concomitant]
     Active Substance: POLAPREZINC
     Dosage: 75 MG, BID (AFTER LUNCH, BEFORE BEDTIME)
  14. POLAPREZINC [Concomitant]
     Active Substance: POLAPREZINC
     Dosage: 75 MG, 1D (AFTER LUNCH)
  15. POLAPREZINC [Concomitant]
     Active Substance: POLAPREZINC
     Dosage: 75 MG, BID
  16. ESOMEPRAZOLE [Concomitant]
     Active Substance: ESOMEPRAZOLE
     Dosage: 20 MG, 1D (AFTER BREAKFAST)
  17. FOLIC ACID [Concomitant]
     Active Substance: FOLIC ACID
     Dosage: 10 MG, 1D (AFTER LUNCH)
  18. METHYLCOBALAMIN [Concomitant]
     Active Substance: METHYLCOBALAMIN
     Dosage: 500 UG, TID (AFTER BREAKFAST, LUNCH AND DINNER)
  19. METHYLCOBALAMIN [Concomitant]
     Active Substance: METHYLCOBALAMIN
     Dosage: 500 UG, BID (AFTER BREAKFAST AND LUNCH)
  20. ASPIRIN [Concomitant]
     Active Substance: ASPIRIN
     Dosage: 100 MG, 1D (AFTER BREAKFAST)
  21. ZINC [Concomitant]
     Active Substance: ZINC
     Dosage: 25 MG, BID (AFTER BREAKFAST AND DINNER)
  22. ZINC [Concomitant]
     Active Substance: ZINC
     Dosage: 25 MG, 1D (AFTER BREAKFAST)
  23. AMOXICILLIN [Concomitant]
     Active Substance: AMOXICILLIN
     Dosage: 250 MG, BID
  24. AMOXICILLIN [Concomitant]
     Active Substance: AMOXICILLIN
     Dosage: 250 MG, 1D
  25. AMOXICILLIN [Concomitant]
     Active Substance: AMOXICILLIN
     Dosage: 250 MG, TID
  26. AMOXICILLIN [Concomitant]
     Active Substance: AMOXICILLIN
     Dosage: 250 MG, BID (AFTER BREAKFAST AND LUNCH)
  27. GLYCOSAMINOGLYCANS [Concomitant]
     Active Substance: GLYCOSAMINOGLYCANS
     Dosage: UNK, BID (25 G X 17 PCS)
  28. P tol [Concomitant]
     Dosage: 250 MG, TID (RIGHT BEFORE BREAKFAST, LUNCH AND DINNER)
  29. P tol [Concomitant]
     Dosage: 250 MG, BID (RIGHT BEFORE BREAKFAST AND LUNCH)
  30. ASCORBIC ACID\VITAMINS [Concomitant]
     Active Substance: ASCORBIC ACID\VITAMINS
     Dosage: 250 MG, 1D
  31. ASCORBIC ACID\VITAMINS [Concomitant]
     Active Substance: ASCORBIC ACID\VITAMINS
     Dosage: 250 MG, TID
  32. ASCORBIC ACID\VITAMINS [Concomitant]
     Active Substance: ASCORBIC ACID\VITAMINS
     Dosage: 250 MG, BID
  33. ASCORBIC ACID\VITAMINS [Concomitant]
     Active Substance: ASCORBIC ACID\VITAMINS
     Dosage: 1 G, TID
  34. SODIUM PICOSULFATE [Concomitant]
     Active Substance: SODIUM PICOSULFATE
     Dosage: UNK, 1D (1 PC)
  35. KETOPROFEN [Concomitant]
     Active Substance: KETOPROFEN
     Dosage: 63 SHEETS, 1D (40 MG X 7 SHEETS/SACHET, 2 SACHETS)
  36. DIETARY SUPPLEMENT\PROBIOTICS [Concomitant]
     Active Substance: DIETARY SUPPLEMENT\PROBIOTICS NOS
     Dosage: 1 G, TID (AFTER BREAKFAST, LUNCH AND DINNER)
  37. DIETARY SUPPLEMENT\PROBIOTICS [Concomitant]
     Active Substance: DIETARY SUPPLEMENT\PROBIOTICS NOS
     Dosage: 1 G, BID (AFTER BREAKFAST AND LUNCH)
  38. NEXIUM [Concomitant]
     Active Substance: ESOMEPRAZOLE MAGNESIUM
     Dosage: 20 MG, 1D (AFTER BREAKFAST)
  39. SODIUM PICOSULFATE [Concomitant]
     Active Substance: SODIUM PICOSULFATE
  40. NAFAMOSTAT MESYLATE [Concomitant]
     Active Substance: NAFAMOSTAT MESYLATE
     Indication: Gastrointestinal haemorrhage
     Dosage: 120 MG, 3W
  41. ROXADUSTAT [Concomitant]
     Active Substance: ROXADUSTAT
     Indication: Nephrogenic anaemia
     Dosage: 120 MG, 3W
  42. ROXADUSTAT [Concomitant]
     Active Substance: ROXADUSTAT
     Dosage: 120 MG, 3W
  43. KAYEXALATE [Concomitant]
     Active Substance: SODIUM POLYSTYRENE SULFONATE
     Dosage: 6.54 G, 1D (AFTER DINNER)
  44. RENAGEL [Concomitant]
     Active Substance: SEVELAMER HYDROCHLORIDE
     Dosage: 3000 G, 1D (IMMEDIATELY BEFORE EACH MEAL)
  45. BIFIDOBACTERIUM BIFIDUM [Concomitant]
     Active Substance: BIFIDOBACTERIUM BIFIDUM
     Dosage: 12 MG, TID (AFTER EACH MEAL)
  46. METHYLCOBALAMIN [Concomitant]
     Active Substance: METHYLCOBALAMIN
     Dosage: 0.5 MG, TID (AFTER EACH MEAL)
  47. ASPIRIN [Concomitant]
     Active Substance: ASPIRIN
     Dosage: 100 MG, 1D (AFTER BREAKFAST)
  48. CEFACLOR [Concomitant]
     Active Substance: CEFACLOR
     Dosage: 500 MG, 1D (AFTER LUNCH)
  49. HYALURONATE SODIUM [Concomitant]
     Active Substance: HYALURONATE SODIUM
  50. HYALURONATE SODIUM [Concomitant]
     Active Substance: HYALURONATE SODIUM
  51. HYALURONATE SODIUM [Concomitant]
     Active Substance: HYALURONATE SODIUM
  52. KETOTIFEN FUMARATE [Concomitant]
     Active Substance: KETOTIFEN FUMARATE
  53. KETOPROFEN [Concomitant]
     Active Substance: KETOPROFEN
     Dosage: 63 SHEETS, 1D
  54. ROCALTROL [Concomitant]
     Active Substance: CALCITRIOL
  55. CYANOCOBALAMIN\PYRIDOXINE HYDROCHLORIDE\THIAMINE [Concomitant]
     Active Substance: CYANOCOBALAMIN\PYRIDOXINE HYDROCHLORIDE\THIAMINE
  56. DEXTROSE [Concomitant]
     Active Substance: DEXTROSE MONOHYDRATE
  57. AMINO ACIDS\ELECTROLYTES NOS [Concomitant]
     Active Substance: AMINO ACIDS\ELECTROLYTES NOS
  58. LEVOCARNITINE [Concomitant]
     Active Substance: LEVOCARNITINE
     Indication: Carnitine deficiency
     Dosage: 1000 MG, 3W
  59. CEFAZOLIN SODIUM [Concomitant]
     Active Substance: CEFAZOLIN SODIUM
  60. Heparinoid [Concomitant]
  61. Heparinoid [Concomitant]
  62. Heparinoid [Concomitant]
  63. Heparinoid [Concomitant]

REACTIONS (6)
  - Aplasia pure red cell [Unknown]
  - Nephrogenic anaemia [Unknown]
  - Aplastic anaemia [Unknown]
  - Haemoglobin decreased [Unknown]
  - Product use issue [Unknown]
  - Off label use [Unknown]

NARRATIVE: CASE EVENT DATE: 20240123
